FAERS Safety Report 4301331-6 (Version None)
Quarter: 2004Q1

REPORT INFORMATION
  Report Type: 
  Country: None (occurrence: None)
  Receive Date: 20040223
  Receipt Date: 20030220
  Transmission Date: 20041129
  Serious: No
  Sender: FDA-Public Use
  Company Number: US-GLAXOSMITHKLINE-A0397376A

PATIENT
  Age: 64 Year
  Sex: Female

DRUGS (1)
  1. NAVELBINE [Suspect]
     Dosage: 40MGM2 UNKNOWN
     Route: 042
     Dates: start: 20030213

REACTIONS (1)
  - PAIN IN EXTREMITY [None]
